FAERS Safety Report 25230222 (Version 1)
Quarter: 2025Q2

REPORT INFORMATION
  Report Type: Spontaneous
  Country: US (occurrence: None)
  Receive Date: 20250423
  Receipt Date: 20250423
  Transmission Date: 20250717
  Serious: Yes (Hospitalization)
  Sender: FDA-CTU
  Company Number: None

PATIENT
  Age: 27 Year
  Sex: Female

DRUGS (9)
  1. TEZSPIRE [Suspect]
     Active Substance: TEZEPELUMAB-EKKO
     Indication: Asthma
     Dosage: FREQUENCY : MONTHLY;?
     Route: 058
     Dates: start: 20240207
  2. ALLEGRA ALRG TAB 180MG [Concomitant]
  3. ALPRAZOLAM TAB 0.5MG [Concomitant]
  4. AZELASTINE SPR 0.1% [Concomitant]
  5. FLONASE SENS SUS 27.5MCG [Concomitant]
  6. MIRALAX POW 3350 NF [Concomitant]
  7. QULIPTA TAB 30MG [Concomitant]
  8. XEOMIN [Concomitant]
     Active Substance: INCOBOTULINUMTOXINA
  9. XYZAL TAB 5MG [Concomitant]

REACTIONS (3)
  - Drug ineffective [None]
  - Fall [None]
  - Loss of personal independence in daily activities [None]

NARRATIVE: CASE EVENT DATE: 20250419
